FAERS Safety Report 14759510 (Version 1)
Quarter: 2018Q2

REPORT INFORMATION
  Report Type: Spontaneous
  Country: US (occurrence: US)
  Receive Date: 20180413
  Receipt Date: 20180413
  Transmission Date: 20180711
  Serious: Yes (Death, Hospitalization)
  Sender: FDA-Public Use
  Company Number: None

PATIENT
  Age: 32 Year
  Sex: Male

DRUGS (2)
  1. ETHANOL EXTRACTION 190 PROOF DENATURED GRAIN ALCOHOL [Suspect]
     Active Substance: ALCOHOL
  2. KRATOM [Suspect]
     Active Substance: MITRAGYNINE\HERBALS

REACTIONS (10)
  - Seizure [None]
  - Myocardial infarction [None]
  - Brain injury [None]
  - Corneal reflex decreased [None]
  - Brain death [None]
  - Dialysis [None]
  - Blood methanol increased [None]
  - Product quality issue [None]
  - Alcohol poisoning [None]
  - Brain oedema [None]

NARRATIVE: CASE EVENT DATE: 20180403
